FAERS Safety Report 5662729-7 (Version None)
Quarter: 2008Q1

REPORT INFORMATION
  Report Type: 
  Country: None (occurrence: None)
  Receive Date: 20080313
  Receipt Date: 20080307
  Transmission Date: 20080703
  Serious: Yes (Other)
  Sender: FDA-Public Use
  Company Number: DE-AVENTIS-200810255DE

PATIENT
  Sex: Female

DRUGS (1)
  1. CLEXANE [Suspect]
     Indication: FACTOR II MUTATION
     Dosage: DOSE: NOT REPORTED
     Dates: start: 20080125

REACTIONS (1)
  - ABORTION SPONTANEOUS [None]
